FAERS Safety Report 6060692-0 (Version None)
Quarter: 2009Q1

REPORT INFORMATION
  Report Type: 
  Country: None (occurrence: None)
  Receive Date: 20090202
  Receipt Date: 20090121
  Transmission Date: 20090719
  Serious: Yes (Disabling, Other)
  Sender: FDA-Public Use
  Company Number: GB-PFIZER INC-2008152949

PATIENT

DRUGS (1)
  1. SYNAREL [Suspect]
     Indication: IN VITRO FERTILISATION
     Dosage: 800 UG, DAILY
     Route: 045
     Dates: start: 20081006, end: 20081111

REACTIONS (3)
  - DRUG HYPERSENSITIVITY [None]
  - LICHENOID KERATOSIS [None]
  - RASH GENERALISED [None]
